FAERS Safety Report 8255366-1 (Version None)
Quarter: 2012Q2

REPORT INFORMATION
  Report Type: 
  Country: None (occurrence: None)
  Receive Date: 20120403
  Receipt Date: 20120329
  Transmission Date: 20120825
  Serious: No
  Sender: FDA-Public Use
  Company Number: US-JNJFOC-20120113482

PATIENT
  Sex: Female

DRUGS (4)
  1. DEPAKOTE [Concomitant]
     Route: 065
  2. SEROQUEL [Concomitant]
     Indication: INSOMNIA
     Route: 065
  3. INVEGA SUSTENNA [Suspect]
     Indication: SCHIZOPHRENIA
     Route: 030
     Dates: start: 20110101
  4. RISPERDAL [Suspect]
     Indication: SCHIZOPHRENIA
     Route: 065

REACTIONS (4)
  - VISION BLURRED [None]
  - ABNORMAL SENSATION IN EYE [None]
  - THERAPEUTIC RESPONSE INCREASED [None]
  - HEADACHE [None]
